FAERS Safety Report 5041426-5 (Version None)
Quarter: 2006Q2

REPORT INFORMATION
  Report Type: 
  Country: None (occurrence: None)
  Receive Date: 20060601
  Receipt Date: 20060221
  Transmission Date: 20061013
  Serious: No
  Sender: FDA-Public Use
  Company Number: 2006PV009058

PATIENT
  Age: 40 Year
  Sex: Female
  Weight: 80.7403 kg

DRUGS (6)
  1. BYETTA [Suspect]
     Indication: WEIGHT DECREASED
     Dosage: 5 MCG; BID
     Dates: start: 20060203, end: 20060220
  2. METRONIDAZOLE [Concomitant]
  3. AMOXICILLIN [Concomitant]
  4. REGLAN [Concomitant]
  5. ACIPHEX [Concomitant]
  6. THYROLAR [Concomitant]

REACTIONS (5)
  - CONFUSIONAL STATE [None]
  - DIZZINESS [None]
  - DYSGEUSIA [None]
  - NAUSEA [None]
  - TREMOR [None]
